FAERS Safety Report 4503729-X (Version None)
Quarter: 2004Q4

REPORT INFORMATION
  Report Type: 
  Country: None (occurrence: None)
  Receive Date: 20041115
  Receipt Date: 20041029
  Transmission Date: 20050328
  Serious: No
  Sender: FDA-Public Use
  Company Number: 9210

PATIENT
  Age: 81 Year
  Sex: Male

DRUGS (1)
  1. MITOMYCIN [Suspect]
     Indication: BLADDER CANCER
     Dosage: 40 MG/ML
     Route: 043
     Dates: start: 20041007

REACTIONS (3)
  - ECZEMA [None]
  - GENITAL ERYTHEMA [None]
  - PALMAR ERYTHEMA [None]
